FAERS Safety Report 17139938 (Version 1)
Quarter: 2019Q4

REPORT INFORMATION
  Report Type: Spontaneous
  Country: ES (occurrence: ES)
  Receive Date: 20191211
  Receipt Date: 20191211
  Transmission Date: 20200122
  Serious: Yes (Hospitalization)
  Sender: FDA-Public Use
  Company Number: ES-ACCORD-164353

PATIENT
  Age: 82 Year
  Sex: Female

DRUGS (13)
  1. SINTROM [Concomitant]
     Active Substance: ACENOCOUMAROL
     Dosage: STRENGTH 4 MG, 20 TABLETS
  2. SIMVASTATIN. [Concomitant]
     Active Substance: SIMVASTATIN
     Dosage: STRENGTH 10 MG
  3. PARACETAMOL CINFA [Concomitant]
     Dosage: STRENGTH 1 G EFFERVESCENT POWDER EFG, 40 SACHETS
  4. THIAMAZOLE [Concomitant]
     Active Substance: METHIMAZOLE
     Dosage: STRENGTH 5 MG
  5. NYSTATIN/NYSTATIN/LIPOSOME [Concomitant]
     Active Substance: NYSTATIN
  6. FUROSEMIDE. [Suspect]
     Active Substance: FUROSEMIDE
     Indication: CARDIAC FAILURE
     Route: 048
     Dates: start: 20190114
  7. ALOGLIPTIN/METFORMIN [Concomitant]
  8. GREGAL [Concomitant]
     Dosage: 10 MCG / DOSE RELEASED POWDER FOR INHALATION (HARD CAPSULE)
  9. TRAZODONE [Concomitant]
     Active Substance: TRAZODONE HYDROCHLORIDE
     Dosage: STRENGTH 100 MG
  10. SERETIDE [Concomitant]
     Active Substance: FLUTICASONE PROPIONATE\SALMETEROL XINAFOATE
     Dosage: 25 MCG/250 MCG/INHALATION SUSPENSION FOR INHALATION IN PRESSURIZED CONTAINER 1 INHALER OF 120 DOSES
  11. OMEPRAZOLE. [Concomitant]
     Active Substance: OMEPRAZOLE
  12. SPIRONOLACTONE. [Concomitant]
     Active Substance: SPIRONOLACTONE
  13. BISOPROLOL [Concomitant]
     Active Substance: BISOPROLOL

REACTIONS (1)
  - Acute kidney injury [Unknown]

NARRATIVE: CASE EVENT DATE: 20190218
